FAERS Safety Report 18939850 (Version 1)
Quarter: 2021Q1

REPORT INFORMATION
  Report Type: Spontaneous
  Country: US (occurrence: US)
  Receive Date: 20210225
  Receipt Date: 20210225
  Transmission Date: 20210420
  Serious: Yes (Other)
  Sender: FDA-Public Use
  Company Number: None

PATIENT
  Age: 70 Year
  Sex: Female
  Weight: 96.75 kg

DRUGS (16)
  1. KRILL OIL [Concomitant]
     Active Substance: DIETARY SUPPLEMENT\KRILL OIL
  2. LOSARTAN. [Concomitant]
     Active Substance: LOSARTAN
  3. MAGNESIUM [Concomitant]
     Active Substance: MAGNESIUM
  4. VITA D [Concomitant]
  5. COENZYME Q10 [Concomitant]
     Active Substance: DIETARY SUPPLEMENT\UBIDECARENONE
  6. PULIMICORT FLEXHALER [Concomitant]
  7. COLLAGEN/BIOTIN [Concomitant]
  8. VITA E [Concomitant]
  9. MULTI [Concomitant]
  10. NP THYROID [Suspect]
     Active Substance: LEVOTHYROXINE\LIOTHYRONINE
     Indication: HYPOTHYROIDISM
     Route: 048
     Dates: start: 20180211
  11. ARMOUR THYROID [Suspect]
     Active Substance: THYROID, PORCINE
  12. NEOCELL [Concomitant]
  13. DILTIAZEM. [Concomitant]
     Active Substance: DILTIAZEM
  14. MONTELUKAST [Concomitant]
     Active Substance: MONTELUKAST SODIUM
  15. PROBIOTIC [Concomitant]
     Active Substance: PROBIOTICS NOS
  16. ZYRTEC [Concomitant]
     Active Substance: CETIRIZINE HYDROCHLORIDE

REACTIONS (5)
  - Condition aggravated [None]
  - Suspected product quality issue [None]
  - Onychoclasis [None]
  - Alopecia [None]
  - Blood thyroid stimulating hormone increased [None]

NARRATIVE: CASE EVENT DATE: 20210215
